FAERS Safety Report 7911708-5 (Version None)
Quarter: 2011Q4

REPORT INFORMATION
  Report Type: 
  Country: None (occurrence: None)
  Receive Date: 20111114
  Receipt Date: 20111102
  Transmission Date: 20120403
  Serious: Yes (Other)
  Sender: FDA-Public Use
  Company Number: IT-JNJFOC-20111101898

PATIENT
  Sex: Female

DRUGS (1)
  1. HALDOL [Suspect]
     Indication: BIPOLAR I DISORDER
     Route: 065

REACTIONS (3)
  - INSOMNIA [None]
  - TORTICOLLIS [None]
  - DRY MOUTH [None]
